FAERS Safety Report 5707309-X (Version None)
Quarter: 2008Q2

REPORT INFORMATION
  Report Type: 
  Country: None (occurrence: None)
  Receive Date: 20080416
  Receipt Date: 20080414
  Transmission Date: 20081010
  Serious: Yes (Death, Other)
  Sender: FDA-Public Use
  Company Number: US-BRISTOL-MYERS SQUIBB COMPANY-14121818

PATIENT
  Age: 55 Year
  Sex: Male
  Weight: 91 kg

DRUGS (4)
  1. ERBITUX [Suspect]
     Indication: NEOPLASM MALIGNANT
     Dosage: 400 MG/M2 LOADING DOSE. 7TH CYCLE WAS ON 03-MAR-2008.
     Route: 042
  2. RADIOTHERAPY [Suspect]
     Indication: NEOPLASM MALIGNANT
  3. BENADRYL [Concomitant]
     Indication: PREMEDICATION
  4. ANTIBIOTICS [Concomitant]
     Indication: CELLULITIS

REACTIONS (3)
  - DEATH [None]
  - HYPOMAGNESAEMIA [None]
  - RADIATION SKIN INJURY [None]
